FAERS Safety Report 12217984 (Version 7)
Quarter: 2017Q1

REPORT INFORMATION
  Report Type: Report from Study
  Country: US (occurrence: US)
  Receive Date: 20160329
  Receipt Date: 20170112
  Transmission Date: 20170428
  Serious: Yes (Hospitalization)
  Sender: FDA-Public Use
  Company Number: US-ACTELION-A-NJ2016-133422

PATIENT
  Age: 34 Year
  Sex: Female

DRUGS (5)
  1. OPSUMIT [Concomitant]
     Active Substance: MACITENTAN
     Indication: PULMONARY ARTERIAL HYPERTENSION
     Route: 065
  2. AMBRISENTAN [Suspect]
     Active Substance: AMBRISENTAN
     Indication: PRODUCT USED FOR UNKNOWN INDICATION
     Route: 065
  3. ADCIRCA [Concomitant]
     Active Substance: TADALAFIL
  4. OXYGEN. [Concomitant]
     Active Substance: OXYGEN
  5. VELETRI [Suspect]
     Active Substance: EPOPROSTENOL
     Indication: PULMONARY ARTERIAL HYPERTENSION
     Dosage: 6 NG/KG, PER MIN
     Route: 042
     Dates: start: 20160310

REACTIONS (16)
  - Pulmonary arterial hypertension [Unknown]
  - International normalised ratio decreased [Unknown]
  - Oedema [Unknown]
  - Thrombosis in device [Unknown]
  - Fluid retention [Recovering/Resolving]
  - Asthenia [Unknown]
  - Dyspnoea [Recovering/Resolving]
  - Diarrhoea [Unknown]
  - Oxygen saturation decreased [Recovering/Resolving]
  - Headache [Unknown]
  - Device infusion issue [Recovered/Resolved]
  - Thrombosis [Unknown]
  - Dyspnoea [Unknown]
  - Pain in jaw [Unknown]
  - Syncope [Unknown]
  - Medical device change [Unknown]
